FAERS Safety Report 18709147 (Version 2)
Quarter: 2021Q1

REPORT INFORMATION
  Report Type: Spontaneous
  Country: US (occurrence: US)
  Receive Date: 20210107
  Receipt Date: 20210219
  Transmission Date: 20210419
  Serious: No
  Sender: FDA-Public Use
  Company Number: US-ASTRAZENECA-2020SF68720

PATIENT
  Sex: Male
  Weight: 86.2 kg

DRUGS (1)
  1. BREZTRI AEROSPHERE [Suspect]
     Active Substance: BUDESONIDE\FORMOTEROL\GLYCOPYRRONIUM
     Dosage: 160UG/INHAL TWO TIMES A DAY
     Route: 055

REACTIONS (3)
  - Agitation [Unknown]
  - Intentional device misuse [Not Recovered/Not Resolved]
  - Device defective [Unknown]
